FAERS Safety Report 17503533 (Version 1)
Quarter: 2020Q1

REPORT INFORMATION
  Report Type: Spontaneous
  Country: DE (occurrence: DE)
  Receive Date: 20200305
  Receipt Date: 20200305
  Transmission Date: 20200409
  Serious: Yes (Life-Threatening, Other)
  Sender: FDA-Public Use
  Company Number: DE-BAXTER-2020BAX004564

PATIENT
  Age: 42 Year
  Sex: Male

DRUGS (1)
  1. LEVOFLOXACIN 5 MG/ML SOLUTION FOR INFUSION [Suspect]
     Active Substance: LEVOFLOXACIN
     Indication: BORDETELLA INFECTION
     Route: 065

REACTIONS (4)
  - Anaphylactic reaction [Unknown]
  - Tachycardia [Unknown]
  - Hypotension [Unknown]
  - Drug intolerance [Unknown]
